FAERS Safety Report 6292518-4 (Version None)
Quarter: 2009Q3

REPORT INFORMATION
  Report Type: 
  Country: None (occurrence: None)
  Receive Date: 20090730
  Receipt Date: 20090730
  Transmission Date: 20100115
  Serious: Yes (Life-Threatening)
  Sender: FDA-Public Use
  Company Number: None

PATIENT
  Sex: Female
  Weight: 60 kg

DRUGS (7)
  1. ALTEPLASE 100 MG/100 ML [Suspect]
     Indication: EMBOLIC STROKE
     Dosage: 1 DOSE
     Dates: start: 20090728, end: 20090728
  2. COMBIVENT [Concomitant]
  3. ARTIFICIAL TEARS -TEARISOL- [Concomitant]
  4. CALCIUM CAR-VIT D2 [Concomitant]
  5. OYSTER SHELL CALCIUM-VITAMIN D- [Concomitant]
  6. ENALAPRILAT [Concomitant]
  7. LABETALOL HCL [Concomitant]

REACTIONS (1)
  - ANAPHYLACTOID REACTION [None]
